FAERS Safety Report 7236800-2 (Version None)
Quarter: 2011Q1

REPORT INFORMATION
  Report Type: 
  Country: None (occurrence: None)
  Receive Date: 20110120
  Receipt Date: 20110117
  Transmission Date: 20110831
  Serious: Yes (Hospitalization, Other)
  Sender: FDA-Public Use
  Company Number: BR-ABBOTT-11P-020-0698316-00

PATIENT
  Sex: Female
  Weight: 62 kg

DRUGS (8)
  1. TIOTROPIUM [Concomitant]
     Indication: BRONCHOSPASM
     Route: 048
  2. HUMIRA [Suspect]
     Indication: CROHN'S DISEASE
     Route: 058
     Dates: start: 20080101, end: 20101225
  3. ISONIAZID [Concomitant]
     Indication: ANTIBIOTIC PROPHYLAXIS
     Route: 048
     Dates: start: 20101101
  4. PREGABALIN [Concomitant]
     Indication: FIBROMYALGIA
     Route: 048
     Dates: start: 20101101
  5. CONVISENT (?) [Concomitant]
     Indication: BRONCHOSPASM
     Dosage: USES THE DRUG WHEN IT IS NECESSARY
     Route: 048
  6. TRAMADOL HYDROCHLORIDE [Concomitant]
     Indication: ABDOMINAL PAIN
     Route: 048
  7. DIAZEPAM [Concomitant]
     Indication: ANXIOLYTIC THERAPY
     Route: 048
  8. BUSCOPAN COMPOSTO [Concomitant]
     Indication: ABDOMINAL PAIN
     Route: 048

REACTIONS (5)
  - BRAIN HYPOXIA [None]
  - DYSPNOEA [None]
  - HYPOPHAGIA [None]
  - ULCER [None]
  - APHASIA [None]
